FAERS Safety Report 7824934-0 (Version None)
Quarter: 2011Q4

REPORT INFORMATION
  Report Type: 
  Country: None (occurrence: None)
  Receive Date: 20111019
  Receipt Date: 20110301
  Transmission Date: 20120403
  Serious: No
  Sender: FDA-Public Use
  Company Number: US-BRISTOL-MYERS SQUIBB COMPANY-15579915

PATIENT
  Age: 50 Year
  Sex: Female

DRUGS (5)
  1. XANAX [Concomitant]
  2. LOPRESSOR [Concomitant]
  3. LEVOTHYROXINE SODIUM [Concomitant]
  4. AVALIDE [Suspect]
     Dosage: DURATION: 3-4 YEARS
  5. TRAZODONE HCL [Concomitant]

REACTIONS (2)
  - OEDEMA PERIPHERAL [None]
  - MUSCULOSKELETAL PAIN [None]
